FAERS Safety Report 6920773-3 (Version None)
Quarter: 2010Q3

REPORT INFORMATION
  Report Type: 
  Country: None (occurrence: None)
  Receive Date: 20100804
  Receipt Date: 20100521
  Transmission Date: 20110219
  Serious: No
  Sender: FDA-Public Use
  Company Number: 2010-1880

PATIENT
  Age: 53 Year
  Sex: Female

DRUGS (2)
  1. SOMATULINE DEPOT [Suspect]
     Indication: ACROMEGALY
     Dosage: 60MG (60 MG,1 IN 28 D), SUBCUTANEOUS
     Route: 058
     Dates: start: 20100520
  2. MANENDA (ALL OTHER THERAPEUTIC PRODUCTS) [Suspect]
     Indication: PRODUCT USED FOR UNKNOWN INDICATION
     Dosage: 5 MG (5 MG,1 IN 1 D); 30 MG (15 MG,2 IN 1 D)

REACTIONS (3)
  - ABDOMINAL PAIN UPPER [None]
  - BLOOD GLUCOSE INCREASED [None]
  - REGURGITATION [None]
